FAERS Safety Report 10035616 (Version 6)
Quarter: 2018Q4

REPORT INFORMATION
  Report Type: Spontaneous
  Country: JP (occurrence: JP)
  Receive Date: 20140325
  Receipt Date: 20181203
  Transmission Date: 20190204
  Serious: Yes (Death, Life-Threatening, Hospitalization)
  Sender: FDA-Public Use
  Company Number: JP-B.I. PHARMACEUTICALS,INC./RIDGEFIELD-2014-BI-13006NB

PATIENT
  Age: 84 Year
  Sex: Female
  Weight: 50 kg

DRUGS (8)
  1. NEOPHAGEN C [Concomitant]
     Indication: VIRAL HEPATITIS CARRIER
     Route: 048
     Dates: end: 20140321
  2. PRAZAXA [Suspect]
     Active Substance: DABIGATRAN ETEXILATE MESYLATE
     Indication: ATRIAL FIBRILLATION
     Route: 048
     Dates: start: 2013, end: 20140321
  3. ALDACTONE A [Concomitant]
     Active Substance: SPIRONOLACTONE
     Indication: PRODUCT USED FOR UNKNOWN INDICATION
     Route: 048
     Dates: end: 20140321
  4. SUNRYTHM [Concomitant]
     Active Substance: PILSICAINIDE HYDROCHLORIDE
     Indication: ATRIAL FIBRILLATION
     Route: 048
     Dates: end: 20140321
  5. ADALAT [Concomitant]
     Active Substance: NIFEDIPINE
     Indication: HYPERTENSION
     Route: 048
     Dates: end: 20140321
  6. RENIVACE [Concomitant]
     Active Substance: ENALAPRIL
     Indication: HYPERTENSION
     Route: 048
     Dates: end: 20140321
  7. URSO [Concomitant]
     Active Substance: URSODIOL
     Indication: VIRAL HEPATITIS CARRIER
     Route: 048
     Dates: end: 20140321
  8. ARTIST [Concomitant]
     Active Substance: CARVEDILOL
     Indication: HYPERTENSION
     Route: 048
     Dates: end: 20140321

REACTIONS (5)
  - Disseminated intravascular coagulation [Fatal]
  - Cardiac arrest [Recovering/Resolving]
  - Aortic dissection [Fatal]
  - Haemorrhage [Fatal]
  - Shock haemorrhagic [Fatal]

NARRATIVE: CASE EVENT DATE: 20140321
